FAERS Safety Report 9167193 (Version 4)
Quarter: 2013Q3

REPORT INFORMATION
  Report Type: Spontaneous
  Country: US (occurrence: US)
  Receive Date: 20130318
  Receipt Date: 20130726
  Transmission Date: 20140515
  Serious: Yes (Hospitalization)
  Sender: FDA-Public Use
  Company Number: US-BIOGENIDEC-2013BI023388

PATIENT
  Age: 54 Year
  Sex: Female

DRUGS (11)
  1. TYSABRI [Suspect]
     Indication: MULTIPLE SCLEROSIS
     Route: 042
     Dates: start: 20121101
  2. CYMBALTA [Concomitant]
  3. DYAZIDE [Concomitant]
  4. DIOVAN [Concomitant]
  5. NEURONTIN [Concomitant]
  6. VITAMIN B COMPLEX [Concomitant]
  7. LEVOTHYROXINE [Concomitant]
  8. BIOTIN [Concomitant]
  9. NUVIGIL [Concomitant]
  10. VITAMIN D [Concomitant]
  11. VITAMIN C [Concomitant]

REACTIONS (6)
  - Anaphylactic shock [Recovered/Resolved]
  - Pruritus [Unknown]
  - Chest discomfort [Unknown]
  - Disorientation [Unknown]
  - Dyspnoea [Unknown]
  - Abdominal pain upper [Unknown]
